FAERS Safety Report 7868375-9 (Version None)
Quarter: 2011Q4

REPORT INFORMATION
  Report Type: 
  Country: None (occurrence: None)
  Receive Date: 20111028
  Receipt Date: 20101220
  Transmission Date: 20120403
  Serious: No
  Sender: FDA-Public Use
  Company Number: US-AMGEN-USASP2010010437

PATIENT
  Age: 46 Year
  Sex: Male

DRUGS (12)
  1. NAPROXEN [Concomitant]
     Dosage: 500 MG, UNK
  2. TRIAM                              /00012501/ [Concomitant]
  3. FLEXERIL [Concomitant]
     Dosage: 5 MG, UNK
  4. ALEVE [Concomitant]
  5. VICODIN [Concomitant]
  6. VITAMIN D [Concomitant]
     Dosage: 1000 IU, UNK
  7. ENBREL [Suspect]
     Indication: RHEUMATOID ARTHRITIS
     Dosage: 50 MG, QWK
     Route: 058
     Dates: start: 20101101
  8. METHOTREXATE [Concomitant]
     Dosage: 2.5 MG, UNK
  9. LOSARTAN POTASSIUM [Concomitant]
  10. FOLIC ACID [Concomitant]
     Dosage: 1 MG, UNK
  11. VITAMIN C                          /00008001/ [Concomitant]
     Dosage: 1000 MG, UNK
  12. VITAMIN B COMPLEX                  /00003501/ [Concomitant]

REACTIONS (3)
  - INJECTION SITE SWELLING [None]
  - INJECTION SITE ERYTHEMA [None]
  - WEIGHT INCREASED [None]
